FAERS Safety Report 14890316 (Version 2)
Quarter: 2018Q2

REPORT INFORMATION
  Report Type: Spontaneous
  Country: US (occurrence: US)
  Receive Date: 20180514
  Receipt Date: 20180517
  Transmission Date: 20180711
  Serious: No
  Sender: FDA-Public Use
  Company Number: US-PFIZER INC-2018192198

PATIENT
  Age: 59 Year
  Sex: Female

DRUGS (8)
  1. ZOLOFT [Suspect]
     Active Substance: SERTRALINE HYDROCHLORIDE
     Indication: POST-TRAUMATIC STRESS DISORDER
     Dosage: 50 MG, 1X/DAY
  2. ANTABUSE [Concomitant]
     Active Substance: DISULFIRAM
     Dosage: UNK
  3. ZOLOFT [Suspect]
     Active Substance: SERTRALINE HYDROCHLORIDE
     Indication: DEPRESSION
     Dosage: 50 MG, TWO TIMES A DAY
  4. SEROQUEL [Concomitant]
     Active Substance: QUETIAPINE FUMARATE
     Dosage: UNK
  5. ADVIL [Concomitant]
     Active Substance: IBUPROFEN
     Indication: CHRONIC OBSTRUCTIVE PULMONARY DISEASE
     Dosage: 50 MG, 1X/DAY
  6. ALBUTEROL. [Concomitant]
     Active Substance: ALBUTEROL
     Indication: CHRONIC OBSTRUCTIVE PULMONARY DISEASE
     Dosage: UNK
  7. ADVIL [Concomitant]
     Active Substance: IBUPROFEN
     Dosage: 50 MG, 2X/DAY
  8. NALTREXONE [Concomitant]
     Active Substance: NALTREXONE
     Dosage: UNK

REACTIONS (6)
  - Chest X-ray abnormal [Unknown]
  - Off label use [Unknown]
  - Liver function test abnormal [Unknown]
  - Gait disturbance [Unknown]
  - Dehydration [Unknown]
  - White blood cell count decreased [Unknown]
